FAERS Safety Report 20960344 (Version 1)
Quarter: 2022Q2

REPORT INFORMATION
  Report Type: Report from Study
  Country: AR (occurrence: None)
  Receive Date: 20220615
  Receipt Date: 20220615
  Transmission Date: 20220720
  Serious: Yes (Death)
  Sender: FDA-Public Use
  Company Number: AR-ROCHE-3116057

PATIENT
  Age: 79 Year
  Sex: Male
  Weight: 80 kg

DRUGS (3)
  1. FARICIMAB [Suspect]
     Active Substance: FARICIMAB
     Indication: Macular oedema
     Dosage: THE START DATE OF MOST RECENT DOSE OF STUDY DRUG PRIOR TO AE: 25/MAR/2022 AT 9.50 AM.
     Route: 050
     Dates: start: 20210707
  2. PLACEBO [Suspect]
     Active Substance: UNSPECIFIED INGREDIENT
     Indication: Macular oedema
     Dosage: THE START DATE OF MOST RECENT DOSE OF STUDY DRUG PRIOR TO AE: 25/MAR/2022 AT 9.50 AM.
     Route: 050
     Dates: start: 20210707
  3. CARVEDILOL [Concomitant]
     Active Substance: CARVEDILOL
     Indication: Hypertension
     Route: 048
     Dates: start: 201809

REACTIONS (1)
  - Death [Fatal]

NARRATIVE: CASE EVENT DATE: 20220602
